FAERS Safety Report 7754330-6 (Version None)
Quarter: 2011Q3

REPORT INFORMATION
  Report Type: 
  Country: None (occurrence: None)
  Receive Date: 20110915
  Receipt Date: 20110907
  Transmission Date: 20111222
  Serious: Yes (Hospitalization)
  Sender: FDA-Public Use
  Company Number: AU-ABBOTT-11P-008-0844442-01

PATIENT
  Sex: Female

DRUGS (12)
  1. METOCLOPRAMIDE HYDROCHLORIDE [Concomitant]
     Indication: NAUSEA
     Dates: start: 20090710, end: 20090713
  2. GLUCOSAMINE + CHONDROITIN [Concomitant]
     Indication: ARTHRALGIA
     Dates: start: 20110101
  3. FOLIC ACID [Concomitant]
     Indication: VITAMIN SUPPLEMENTATION
     Dates: start: 20080721
  4. METOCLOPRAMIDE HYDROCHLORIDE [Concomitant]
     Indication: VOMITING
  5. PREDNISONE [Concomitant]
     Dates: start: 20090408
  6. PREDNISONE [Concomitant]
     Dates: start: 20090714, end: 20090719
  7. PREDNISONE [Concomitant]
     Dates: start: 20090720
  8. TRAMADOL HCL [Concomitant]
     Indication: ABDOMINAL PAIN
     Dates: start: 20081201
  9. HYDROCORTISONE [Concomitant]
     Indication: CROHN'S DISEASE
     Dates: start: 20090711, end: 20090713
  10. PREDNISONE [Concomitant]
     Indication: CROHN'S DISEASE
  11. HUMIRA [Suspect]
     Indication: CROHN'S DISEASE
     Dosage: 160 MG BASELINE/80MG WEEK 2
     Route: 058
     Dates: start: 20090415, end: 20110728
  12. METHOTREXATE [Concomitant]
     Indication: CROHN'S DISEASE
     Dates: start: 20080721

REACTIONS (1)
  - COLONIC OBSTRUCTION [None]
